FAERS Safety Report 11941545 (Version 1)
Quarter: 2016Q1

REPORT INFORMATION
  Report Type: Spontaneous
  Country: None (occurrence: AU)
  Receive Date: 20160122
  Receipt Date: 20160122
  Transmission Date: 20160526
  Serious: Yes (Death)
  Sender: FDA-Public Use
  Company Number: AU-PIERRE FABRE-1046828

PATIENT
  Age: 72 Year
  Sex: Female

DRUGS (1)
  1. NAVELBINE [Suspect]
     Active Substance: VINORELBINE TARTRATE
     Indication: LUNG ADENOCARCINOMA
     Route: 048
     Dates: start: 201210, end: 201212

REACTIONS (12)
  - Malignant neoplasm progression [Fatal]
  - Neuropathy peripheral [Fatal]
  - Tumour pain [Fatal]
  - Muscular weakness [Fatal]
  - Muscle spasms [Fatal]
  - Fatigue [Fatal]
  - Incontinence [Fatal]
  - Lower respiratory tract infection [Fatal]
  - Nausea [None]
  - Neutropenia [Fatal]
  - Blood pressure increased [Fatal]
  - Metastases to central nervous system [None]

NARRATIVE: CASE EVENT DATE: 201303
